FAERS Safety Report 7570991-9 (Version None)
Quarter: 2011Q2

REPORT INFORMATION
  Report Type: 
  Country: None (occurrence: None)
  Receive Date: 20110624
  Receipt Date: 20110609
  Transmission Date: 20111010
  Serious: Yes (Disabling)
  Sender: FDA-Public Use
  Company Number: ES-ROCHE-760212

PATIENT
  Sex: Female
  Weight: 50 kg

DRUGS (8)
  1. PREDNISOLONE [Concomitant]
     Dates: start: 20101020
  2. OMEPRAZOLE [Concomitant]
     Dates: start: 20100916
  3. ACETAMINOPHEN [Concomitant]
     Dates: start: 20100916
  4. PLACEBO [Suspect]
     Indication: RHEUMATOID ARTHRITIS
     Dosage: DOSAGE FORM: INFUSION
     Route: 042
     Dates: start: 20110114, end: 20110211
  5. TOCILIZUMAB [Suspect]
     Indication: RHEUMATOID ARTHRITIS
     Dosage: KIT NUMBER 496263: TOCILIZUMAB 200MG/10ML DOSAGE FORM: INFUSION
     Route: 042
     Dates: start: 20101216
  6. ETORICOXIB [Concomitant]
     Dates: start: 20101123
  7. METHOTREXATE [Suspect]
     Indication: RHEUMATOID ARTHRITIS
     Route: 048
     Dates: start: 20101218, end: 20110211
  8. ACID FOLIC [Concomitant]
     Dates: start: 20101221

REACTIONS (1)
  - NEUROSENSORY HYPOACUSIS [None]
